FAERS Safety Report 17386595 (Version 1)
Quarter: 2020Q1

REPORT INFORMATION
  Report Type: Spontaneous
  Country: BE (occurrence: BE)
  Receive Date: 20200206
  Receipt Date: 20200206
  Transmission Date: 20200409
  Serious: Yes (Hospitalization)
  Sender: FDA-Public Use
  Company Number: BE-BAUSCH-BL-2020-003252

PATIENT
  Age: 66 Year
  Sex: Male
  Weight: 98 kg

DRUGS (4)
  1. DARATUMUMAB [Suspect]
     Active Substance: DARATUMUMAB
     Indication: PLASMA CELL MYELOMA
     Dosage: MOST RECENT DOSE 07/JAN/2020
     Route: 058
     Dates: start: 20191028
  2. VELCADE [Suspect]
     Active Substance: BORTEZOMIB
     Indication: PLASMA CELL MYELOMA
     Dosage: MOST RECENT DOSE 03/JAN/2020
     Route: 058
     Dates: start: 20191028
  3. LENALIDOMIDE [Suspect]
     Active Substance: LENALIDOMIDE
     Indication: PLASMA CELL MYELOMA
     Dosage: MOST RECENT DOSE OF 09/JAN/2020
     Route: 048
     Dates: start: 20191028, end: 20200109
  4. DEXAMETHASONE. [Suspect]
     Active Substance: DEXAMETHASONE
     Indication: PLASMA CELL MYELOMA
     Dosage: MOST RECENT DOSE WAS ON 04/JAN/2020
     Route: 065
     Dates: start: 20191028

REACTIONS (1)
  - Pneumonia [Recovering/Resolving]

NARRATIVE: CASE EVENT DATE: 20200110
